FAERS Safety Report 4686347-2 (Version None)
Quarter: 2005Q2

REPORT INFORMATION
  Report Type: 
  Country: None (occurrence: None)
  Receive Date: 20050609
  Receipt Date: 20050527
  Transmission Date: 20051028
  Serious: Yes (Hospitalization)
  Sender: FDA-Public Use
  Company Number: FR-JNJFOC-20050503010

PATIENT
  Age: 68 Year
  Sex: Male

DRUGS (5)
  1. REMICADE [Suspect]
     Indication: RHEUMATOID ARTHRITIS
     Route: 042
  2. IMUREL [Suspect]
     Indication: RHEUMATOID ARTHRITIS
  3. OROCAL [Concomitant]
  4. HYDROCORTISONE [Concomitant]
  5. NEURONTIN [Concomitant]

REACTIONS (2)
  - BASAL CELL CARCINOMA [None]
  - DRUG INTERACTION [None]
